FAERS Safety Report 8380802-X (Version None)
Quarter: 2012Q2

REPORT INFORMATION
  Report Type: 
  Country: None (occurrence: None)
  Receive Date: 20120523
  Receipt Date: 20120515
  Transmission Date: 20120825
  Serious: Yes (Death, Hospitalization)
  Sender: FDA-Public Use
  Company Number: JP-TEVA-2011004968

PATIENT
  Sex: Female
  Weight: 36.4 kg

DRUGS (8)
  1. BENDAMUSTINE HYDROCHLORIDE [Suspect]
     Indication: MANTLE CELL LYMPHOMA
     Route: 042
     Dates: start: 20110223, end: 20110224
  2. MORPHINE [Concomitant]
     Dates: start: 20110610, end: 20110612
  3. BENDAMUSTINE HYDROCHLORIDE [Suspect]
     Route: 042
     Dates: start: 20110509
  4. SUCRALFATE [Concomitant]
     Dates: start: 20110611
  5. DEXAMETHASONE [Concomitant]
     Dosage: 8 MILLIGRAM;
     Dates: start: 20110225, end: 20110226
  6. BENDAMUSTINE HYDROCHLORIDE [Suspect]
     Route: 042
     Dates: start: 20110316, end: 20110317
  7. FENTANYL-100 [Concomitant]
     Dates: start: 20110304
  8. BENDAMUSTINE HYDROCHLORIDE [Suspect]
     Route: 042
     Dates: start: 20110405, end: 20110406

REACTIONS (12)
  - SKIN EXFOLIATION [None]
  - C-REACTIVE PROTEIN INCREASED [None]
  - DECREASED APPETITE [None]
  - MANTLE CELL LYMPHOMA [None]
  - INTESTINAL OBSTRUCTION [None]
  - PYREXIA [None]
  - HAEMOGLOBIN DECREASED [None]
  - MALAISE [None]
  - HYPOPHAGIA [None]
  - VOMITING [None]
  - BLOOD ALBUMIN DECREASED [None]
  - LYMPHOCYTE COUNT DECREASED [None]
